FAERS Safety Report 9329520 (Version 1)
Quarter: 2013Q2

REPORT INFORMATION
  Report Type: Spontaneous
  Country: US (occurrence: US)
  Receive Date: 20130604
  Receipt Date: 20130604
  Transmission Date: 20140414
  Serious: No
  Sender: FDA-Public Use
  Company Number: US-SANOFI-AVENTIS-2012SA095174

PATIENT
  Age: 40 Year
  Sex: Male

DRUGS (3)
  1. LANTUS SOLOSTAR [Suspect]
  2. LANTUS SOLOSTAR [Suspect]
  3. SOLOSTAR [Suspect]

REACTIONS (2)
  - Epistaxis [Unknown]
  - Nausea [Unknown]
